FAERS Safety Report 8051547 (Version 3)
Quarter: 2014Q3

REPORT INFORMATION
  Report Type: Spontaneous
  Country: US (occurrence: US)
  Receive Date: 20110725
  Receipt Date: 20140723
  Transmission Date: 20150326
  Serious: No
  Sender: FDA-Public Use
  Company Number: US-BRISTOL-MYERS SQUIBB COMPANY-15771827

PATIENT
  Age: 72 Year
  Sex: Female
  Weight: 77.1 kg

DRUGS (4)
  1. LOPRESSOR [Concomitant]
     Active Substance: METOPROLOL TARTRATE
  2. COUMADIN [Suspect]
     Active Substance: WARFARIN SODIUM
     Indication: ATRIAL FIBRILLATION
     Dosage: 1 DF= 5MG 4 DAYS/WEEK AND 7.5MG THE REMAINING DAYS EACH WEEK
     Route: 048
     Dates: start: 2011
  3. LANOXIN [Concomitant]
     Active Substance: DIGOXIN
  4. ASPIRIN. [Concomitant]
     Active Substance: ASPIRIN

REACTIONS (6)
  - Asthenia [Not Recovered/Not Resolved]
  - Myalgia [Not Recovered/Not Resolved]
  - Confusional state [Not Recovered/Not Resolved]
  - Chills [Not Recovered/Not Resolved]
  - Arthralgia [Not Recovered/Not Resolved]
  - Alopecia [Not Recovered/Not Resolved]
